FAERS Safety Report 17468035 (Version 1)
Quarter: 2020Q1

REPORT INFORMATION
  Report Type: Spontaneous
  Country: US (occurrence: US)
  Receive Date: 20200215
  Receipt Date: 20200215
  Transmission Date: 20200409
  Serious: No
  Sender: FDA-Public Use
  Company Number: None

PATIENT
  Age: 7 Year
  Sex: Female

DRUGS (1)
  1. NORDITROPIN [Suspect]
     Active Substance: SOMATROPIN
     Indication: TURNER^S SYNDROME
     Dosage: ?          OTHER STRENGTH:10MG/1.5ML;?
     Route: 058
     Dates: start: 201803

REACTIONS (1)
  - Product storage error [None]

NARRATIVE: CASE EVENT DATE: 20200215
